FAERS Safety Report 8012391-3 (Version None)
Quarter: 2011Q4

REPORT INFORMATION
  Report Type: 
  Country: None (occurrence: None)
  Receive Date: 20111228
  Receipt Date: 20111219
  Transmission Date: 20120403
  Serious: Yes (Other)
  Sender: FDA-Public Use
  Company Number: US-ASTRAZENECA-2011SE77198

PATIENT
  Age: 29 Month
  Sex: Male

DRUGS (2)
  1. SODIUM BICARBONATE [Suspect]
     Dosage: 7.5%
     Route: 065
     Dates: start: 20090901
  2. PRILOSEC [Suspect]
     Route: 048

REACTIONS (2)
  - LUNG DISORDER [None]
  - PNEUMONIA [None]
